FAERS Safety Report 12442536 (Version 1)
Quarter: 2016Q2

REPORT INFORMATION
  Report Type: Spontaneous
  Country: US (occurrence: None)
  Receive Date: 20160606
  Receipt Date: 20160606
  Transmission Date: 20160815
  Serious: Yes (Other)
  Sender: FDA-Public Use
  Company Number: None

PATIENT
  Age: 60 Year
  Sex: Female
  Weight: 43.09 kg

DRUGS (6)
  1. TRAZODONE [Concomitant]
     Active Substance: TRAZODONE HYDROCHLORIDE
  2. GABIPENTIN [Concomitant]
  3. VENLAFAXINE ER 150MG TAB, 150MG [Suspect]
     Active Substance: VENLAFAXINE HYDROCHLORIDE
     Indication: DEPRESSION
     Dosage: IN THE MORNING
     Route: 048
     Dates: start: 20160115, end: 20160605
  4. PROBIOTICS [Concomitant]
     Active Substance: PROBIOTICS NOS
  5. KLONOPIN [Concomitant]
     Active Substance: CLONAZEPAM
  6. ACYCLOVIR. [Concomitant]
     Active Substance: ACYCLOVIR

REACTIONS (1)
  - Medication residue present [None]

NARRATIVE: CASE EVENT DATE: 20160601
